FAERS Safety Report 23568073 (Version 2)
Quarter: 2024Q4

REPORT INFORMATION
  Report Type: Spontaneous
  Country: US (occurrence: US)
  Receive Date: 20240226
  Receipt Date: 20241114
  Transmission Date: 20250114
  Serious: No
  Sender: SANOFI AVENTIS
  Company Number: US-SA-SAC20240223000706

PATIENT
  Age: 3 Year
  Sex: Female

DRUGS (2)
  1. DUPIXENT [Suspect]
     Active Substance: DUPILUMAB
     Indication: Eczema
     Dosage: 600 MG;1X
     Route: 058
     Dates: start: 20240108, end: 20240108
  2. DUPIXENT [Suspect]
     Active Substance: DUPILUMAB
     Dosage: 300 MG, Q4W
     Route: 058
     Dates: start: 20240222

REACTIONS (3)
  - Dermatitis atopic [Recovered/Resolved]
  - Inappropriate schedule of product administration [Unknown]
  - Extra dose administered [Unknown]

NARRATIVE: CASE EVENT DATE: 20240101
